FAERS Safety Report 13267929 (Version 3)
Quarter: 2017Q2

REPORT INFORMATION
  Report Type: Spontaneous
  Country: JP (occurrence: JP)
  Receive Date: 20170224
  Receipt Date: 20170623
  Transmission Date: 20170830
  Serious: Yes (Hospitalization)
  Sender: FDA-Public Use
  Company Number: PHJP2017JP005928

PATIENT
  Age: 70 Year
  Sex: Male

DRUGS (2)
  1. TEGRETOL [Suspect]
     Active Substance: CARBAMAZEPINE
     Indication: PRODUCT USED FOR UNKNOWN INDICATION
     Dosage: 700 MG, UNK
     Route: 048
  2. TEGRETOL [Suspect]
     Active Substance: CARBAMAZEPINE
     Dosage: 500 MG, QD
     Route: 048
     Dates: start: 20170204

REACTIONS (4)
  - Overdose [Recovered/Resolved]
  - Drug level increased [Recovered/Resolved]
  - Cerebellar ataxia [Recovered/Resolved]
  - Gait disturbance [Recovered/Resolved]
